FAERS Safety Report 8048109-8 (Version None)
Quarter: 2012Q1

REPORT INFORMATION
  Report Type: 
  Country: None (occurrence: None)
  Receive Date: 20120112
  Receipt Date: 20120112
  Transmission Date: 20120608
  Serious: Yes (Death, Hospitalization)
  Sender: FDA-Public Use
  Company Number: None

PATIENT
  Age: 50 Year
  Sex: Male

DRUGS (11)
  1. THALIDOMIDE [Concomitant]
  2. FLUOXETINE [Concomitant]
  3. NOVOLIN 70/30 [Concomitant]
  4. METOPROLOL [Concomitant]
  5. GABAPENTIN [Concomitant]
  6. DOCUSATE SODIUM [Concomitant]
  7. PREDNISONE [Concomitant]
  8. REVLIMID [Suspect]
     Indication: MULTIPLE MYELOMA
     Dosage: REVLIMID 25 MG DAILY FOR 21 DAYS ORALLY
     Route: 048
     Dates: start: 20101101, end: 20110301
  9. MELPHALAN HYDROCHLORIDE [Concomitant]
  10. ALBUTEROL [Concomitant]
  11. ASPIRIN [Concomitant]

REACTIONS (15)
  - COMPRESSION FRACTURE [None]
  - METASTASES TO THE MEDIASTINUM [None]
  - HEPATIC MASS [None]
  - BONE PAIN [None]
  - FATIGUE [None]
  - MALAISE [None]
  - PULMONARY OEDEMA [None]
  - OEDEMA [None]
  - HYPOPHAGIA [None]
  - RENAL FAILURE ACUTE [None]
  - CONFUSIONAL STATE [None]
  - SPLEEN DISORDER [None]
  - PLEURAL EFFUSION [None]
  - CANCER PAIN [None]
  - THORACIC VERTEBRAL FRACTURE [None]
